FAERS Safety Report 16272602 (Version 1)
Quarter: 2019Q2

REPORT INFORMATION
  Report Type: Spontaneous
  Country: CA (occurrence: CA)
  Receive Date: 20190506
  Receipt Date: 20190506
  Transmission Date: 20190711
  Serious: Yes (Life-Threatening, Hospitalization, Other)
  Sender: FDA-Public Use
  Company Number: CA-AUROBINDO-AUR-APL-2019-024641

PATIENT

DRUGS (5)
  1. PREDNISONE. [Concomitant]
     Active Substance: PREDNISONE
     Indication: PRODUCT USED FOR UNKNOWN INDICATION
     Dosage: UNK
     Route: 065
  2. DIPHENHYDRAMINE. [Concomitant]
     Active Substance: DIPHENHYDRAMINE
     Indication: PRODUCT USED FOR UNKNOWN INDICATION
     Dosage: UNK
     Route: 065
  3. MINOCYCLINE [Suspect]
     Active Substance: MINOCYCLINE\MINOCYCLINE HYDROCHLORIDE
     Indication: SKIN DISORDER
     Dosage: 100 MILLIGRAM, TWO TIMES A DAY
     Route: 048
  4. CLINDAMYCIN. [Suspect]
     Active Substance: CLINDAMYCIN
     Indication: SKIN DISORDER
     Dosage: UNK UNK, ONCE A DAY
     Route: 061
  5. BLEXTEN [Concomitant]
     Active Substance: BILASTINE
     Indication: PRODUCT USED FOR UNKNOWN INDICATION
     Dosage: UNK
     Route: 065

REACTIONS (12)
  - Pyrexia [Recovering/Resolving]
  - Oedema peripheral [Recovering/Resolving]
  - Rhabdomyolysis [Recovering/Resolving]
  - General physical health deterioration [Recovering/Resolving]
  - Headache [Recovering/Resolving]
  - Rash generalised [Recovering/Resolving]
  - Bed bug infestation [Recovering/Resolving]
  - Tachycardia [Recovering/Resolving]
  - Hepatocellular injury [Recovering/Resolving]
  - Palpitations [Recovering/Resolving]
  - Drug reaction with eosinophilia and systemic symptoms [Recovering/Resolving]
  - Lymphadenopathy [Recovering/Resolving]
